FAERS Safety Report 4988267-2 (Version None)
Quarter: 2006Q2

REPORT INFORMATION
  Report Type: 
  Country: None (occurrence: None)
  Receive Date: 20060425
  Receipt Date: 20060419
  Transmission Date: 20061013
  Serious: Yes (Other)
  Sender: FDA-Public Use
  Company Number: JP-2006-007126

PATIENT
  Age: 56 Year
  Sex: Male

DRUGS (1)
  1. PROSCOPE 300 (IOPROMIDE) INFUSION [Suspect]
     Indication: COMPUTERISED TOMOGRAM
     Dosage: 100 ML, 1  DOSE, INTRAVENOUS
     Route: 042
     Dates: start: 20060327, end: 20060327

REACTIONS (8)
  - ANAPHYLACTIC SHOCK [None]
  - ASTHENIA [None]
  - BLOOD ALKALINE PHOSPHATASE INCREASED [None]
  - GENERALISED ERYTHEMA [None]
  - HEART RATE INCREASED [None]
  - HYPOAESTHESIA [None]
  - PROTEIN TOTAL DECREASED [None]
  - SINUS ARRHYTHMIA [None]
